FAERS Safety Report 4343242-6 (Version None)
Quarter: 2004Q2

REPORT INFORMATION
  Report Type: 
  Country: None (occurrence: None)
  Receive Date: 20040421
  Receipt Date: 20040407
  Transmission Date: 20050107
  Serious: Yes (Disabling)
  Sender: FDA-Public Use
  Company Number: US-MERCK-0404USA00912

PATIENT
  Age: 63 Year
  Sex: Female

DRUGS (3)
  1. LEVOXYL [Concomitant]
     Route: 065
  2. ZOCOR [Suspect]
     Indication: HYPERCHOLESTEROLAEMIA
     Route: 048
     Dates: start: 20030701
  3. ZOCOR [Suspect]
     Indication: BLOOD GLUCOSE INCREASED
     Route: 048
     Dates: start: 20030701

REACTIONS (7)
  - ASTHENIA [None]
  - BLOOD CHOLESTEROL ABNORMAL [None]
  - BLOOD GLUCOSE ABNORMAL [None]
  - DIARRHOEA [None]
  - FALL [None]
  - FOOT FRACTURE [None]
  - SOMNOLENCE [None]
